FAERS Safety Report 13922158 (Version 1)
Quarter: 2017Q3

REPORT INFORMATION
  Report Type: Spontaneous
  Country: IT (occurrence: IT)
  Receive Date: 20170830
  Receipt Date: 20170830
  Transmission Date: 20171127
  Serious: Yes (Hospitalization)
  Sender: FDA-Public Use
  Company Number: IT-SA-2017SA156989

PATIENT
  Age: 65 Year
  Sex: Male

DRUGS (14)
  1. CARVEDILOL. [Concomitant]
     Active Substance: CARVEDILOL
     Route: 048
  2. CALCIUM CARBONATE. [Concomitant]
     Active Substance: CALCIUM CARBONATE
     Route: 048
  3. NITROGLYCERIN. [Concomitant]
     Active Substance: NITROGLYCERIN
     Route: 062
  4. TICLOPIDINE HYDROCHLORIDE. [Concomitant]
     Active Substance: TICLOPIDINE HYDROCHLORIDE
     Route: 048
  5. ETORICOXIB [Concomitant]
     Active Substance: ETORICOXIB
     Route: 048
  6. SERTRALINE HYDROCHLORIDE. [Concomitant]
     Active Substance: SERTRALINE HYDROCHLORIDE
     Route: 048
  7. AMIODARONE HYDROCHLORIDE. [Concomitant]
     Active Substance: AMIODARONE HYDROCHLORIDE
     Route: 048
  8. ATORVASTATIN [Concomitant]
     Active Substance: ATORVASTATIN
     Route: 048
  9. CALCIFEROL [Concomitant]
     Active Substance: ERGOCALCIFEROL
     Route: 048
  10. LORAZEPAM. [Concomitant]
     Active Substance: LORAZEPAM
  11. CARDIOASPIRIN [Concomitant]
     Active Substance: ASPIRIN
     Route: 048
  12. LANTUS [Suspect]
     Active Substance: INSULIN GLARGINE
     Route: 058
  13. INSULIN ASPART [Suspect]
     Active Substance: INSULIN ASPART
     Route: 058
  14. PANTOPRAZOLE [Concomitant]
     Active Substance: PANTOPRAZOLE
     Route: 048

REACTIONS (3)
  - Heart rate increased [Unknown]
  - Hypoglycaemia [Unknown]
  - Hyperhidrosis [Unknown]

NARRATIVE: CASE EVENT DATE: 20170712
